FAERS Safety Report 4815755-1 (Version None)
Quarter: 2005Q4

REPORT INFORMATION
  Report Type: 
  Country: None (occurrence: None)
  Receive Date: 20051031
  Receipt Date: 20051019
  Transmission Date: 20060501
  Serious: Yes (Life-Threatening)
  Sender: FDA-Public Use
  Company Number: 2005AP05441

PATIENT
  Age: 67 Year
  Sex: Male
  Weight: 63 kg

DRUGS (7)
  1. DIPRIVAN [Suspect]
     Indication: INDUCTION OF ANAESTHESIA
     Route: 042
     Dates: start: 20050329, end: 20050329
  2. VECURONIUM BROMIDE [Concomitant]
     Indication: INDUCTION OF ANAESTHESIA
     Route: 042
     Dates: start: 20050329, end: 20050329
  3. VECURONIUM BROMIDE [Concomitant]
     Indication: MAINTENANCE OF ANAESTHESIA
     Route: 042
     Dates: start: 20050329, end: 20050329
  4. LAUGHING GAS [Concomitant]
     Indication: MAINTENANCE OF ANAESTHESIA
     Route: 055
     Dates: start: 20050329, end: 20050329
  5. SEVOFLURANE [Concomitant]
     Indication: MAINTENANCE OF ANAESTHESIA
     Route: 055
     Dates: start: 20050329, end: 20050329
  6. FENTANYL [Concomitant]
     Indication: MAINTENANCE OF ANAESTHESIA
     Route: 042
     Dates: start: 20050329, end: 20050329
  7. XYLOCAINE INJECTION WITH EPINEPHRINE [Concomitant]
     Indication: LOCAL ANAESTHESIA
     Dates: start: 20050329, end: 20050329

REACTIONS (2)
  - ELECTROCARDIOGRAM ST SEGMENT ELEVATION [None]
  - VENTRICULAR FIBRILLATION [None]
